FAERS Safety Report 20303790 (Version 1)
Quarter: 2022Q1

REPORT INFORMATION
  Report Type: Spontaneous
  Country: US (occurrence: None)
  Receive Date: 20220105
  Receipt Date: 20220105
  Transmission Date: 20220423
  Serious: Yes (Hospitalization)
  Sender: FDA-Public Use
  Company Number: None

PATIENT
  Sex: Male

DRUGS (3)
  1. PULMOZYME [Suspect]
     Active Substance: DORNASE ALFA
     Indication: Cystic fibrosis
     Dosage: FREQUENCY : DAILY;?OTHER ROUTE : NEBULIZED ;?
     Route: 055
     Dates: start: 201512
  2. PULMOZYME [Suspect]
     Active Substance: DORNASE ALFA
     Indication: Pneumonia pseudomonal
  3. PULMOZYME [Suspect]
     Active Substance: DORNASE ALFA
     Indication: Bronchiectasis

REACTIONS (1)
  - Hospitalisation [None]
